FAERS Safety Report 10657072 (Version 2)
Quarter: 2014Q4

REPORT INFORMATION
  Report Type: Report from Study
  Country: US (occurrence: US)
  Receive Date: 20141217
  Receipt Date: 20141217
  Transmission Date: 20150529
  Serious: Yes (Hospitalization)
  Sender: FDA-Public Use
  Company Number: US-BIOGENIDEC-2014BI105512

PATIENT
  Age: 50 Year
  Sex: Female

DRUGS (2)
  1. TECFIDERA [Suspect]
     Active Substance: DIMETHYL FUMARATE
     Indication: MULTIPLE SCLEROSIS
     Route: 048
     Dates: start: 20141201
  2. TECFIDERA [Suspect]
     Active Substance: DIMETHYL FUMARATE
     Indication: MULTIPLE SCLEROSIS
     Route: 048
     Dates: start: 20140820, end: 20140922

REACTIONS (7)
  - Diarrhoea [Recovered/Resolved]
  - Intentional underdose [Recovered/Resolved]
  - Dehydration [Recovered/Resolved]
  - Gastric disorder [Recovered/Resolved]
  - Flushing [Recovered/Resolved]
  - Abdominal pain upper [Unknown]
  - Decreased appetite [Unknown]

NARRATIVE: CASE EVENT DATE: 201408
